FAERS Safety Report 8585675-8 (Version None)
Quarter: 2012Q3

REPORT INFORMATION
  Report Type: 
  Country: None (occurrence: None)
  Receive Date: 20120810
  Receipt Date: 20120802
  Transmission Date: 20120928
  Serious: Yes (Other)
  Sender: FDA-Public Use
  Company Number: US-JNJFOC-20120800995

PATIENT
  Age: 5 Decade
  Sex: Female

DRUGS (4)
  1. REMICADE [Suspect]
     Indication: COLITIS ULCERATIVE
     Route: 042
     Dates: start: 20120720
  2. PREDNISONE TAB [Concomitant]
     Route: 065
  3. PREDNISONE TAB [Concomitant]
     Route: 065
  4. REMICADE [Suspect]
     Dosage: 3 DOSE INDUCTION
     Route: 042
     Dates: start: 20070101

REACTIONS (5)
  - GAIT DISTURBANCE [None]
  - ARTHRALGIA [None]
  - ADVERSE EVENT [None]
  - MYALGIA [None]
  - PYREXIA [None]
